FAERS Safety Report 9298300 (Version 1)
Quarter: 2013Q2

REPORT INFORMATION
  Report Type: Spontaneous
  Country: US (occurrence: US)
  Receive Date: 20130520
  Receipt Date: 20130520
  Transmission Date: 20140414
  Serious: Yes (Hospitalization)
  Sender: FDA-Public Use
  Company Number: US-BAYER-2013-060664

PATIENT
  Age: 17 Year
  Sex: Female
  Weight: 71.7 kg

DRUGS (17)
  1. YAZ [Suspect]
     Indication: ACNE
     Dosage: UNK
  2. GIANVI [Suspect]
  3. ZYRTEC-D [Concomitant]
  4. ADVIL [Concomitant]
     Dosage: 200 MG, UNK
  5. CEFZIL [Concomitant]
     Dosage: 500 MG, BID
  6. ALLEGRA [Concomitant]
     Dosage: 180 MG, UNK
  7. VITAMIN B12 [CYANOCOBALAMIN] [Concomitant]
  8. MENINGOCOCCAL VACCINE [Concomitant]
     Route: 030
  9. FLUVACCIN [Concomitant]
     Route: 045
  10. RETIN-A [Concomitant]
     Dosage: UNK
  11. CITALOPRAM HYDROBROMIDE [Concomitant]
     Dosage: 5 MG, QD
     Route: 048
  12. VYVANSE [Concomitant]
     Dosage: 70 MG, UNK
  13. COLACE [Concomitant]
  14. OXYCODONE [Concomitant]
  15. ACETAMINOPHEN [Concomitant]
  16. NASONEX [Concomitant]
     Route: 045
  17. MELATONIN [Concomitant]

REACTIONS (2)
  - Deep vein thrombosis [Recovered/Resolved]
  - Pelvic venous thrombosis [Recovering/Resolving]
